FAERS Safety Report 15878476 (Version 1)
Quarter: 2019Q1

REPORT INFORMATION
  Report Type: Spontaneous
  Country: US (occurrence: US)
  Receive Date: 20190128
  Receipt Date: 20190128
  Transmission Date: 20190417
  Serious: Yes (Other)
  Sender: FDA-Public Use
  Company Number: US-ABBVIE-19S-163-2632347-00

PATIENT
  Age: 77 Year
  Sex: Female
  Weight: 49.94 kg

DRUGS (12)
  1. CALCIUM SUPPLEMENT [Concomitant]
     Active Substance: CALCIUM
     Indication: PRODUCT USED FOR UNKNOWN INDICATION
     Route: 048
  2. MYRBETRIQ [Concomitant]
     Active Substance: MIRABEGRON
     Indication: PRODUCT USED FOR UNKNOWN INDICATION
     Dosage: ONE DAILY
     Route: 048
  3. ARICEPT [Concomitant]
     Active Substance: DONEPEZIL HYDROCHLORIDE
     Indication: PRODUCT USED FOR UNKNOWN INDICATION
     Dosage: MORNING AND NIGHT
     Route: 048
  4. GABAPENTIN. [Concomitant]
     Active Substance: GABAPENTIN
     Indication: RESTLESS LEGS SYNDROME
     Route: 048
  5. DUOPA [Suspect]
     Active Substance: CARBIDOPA\LEVODOPA
     Dosage: 5.3 CONTINUOUS RATE
     Route: 050
     Dates: start: 201808, end: 2018
  6. DUOPA [Suspect]
     Active Substance: CARBIDOPA\LEVODOPA
     Dosage: 5.5 CONTINUOUS RATE
     Route: 050
     Dates: start: 2018
  7. COREG [Concomitant]
     Active Substance: CARVEDILOL
     Indication: PRODUCT USED FOR UNKNOWN INDICATION
     Dosage: ONE DAILY
     Route: 048
  8. LISINOPRIL. [Concomitant]
     Active Substance: LISINOPRIL
     Indication: HYPOTENSION
     Dosage: ONE DAILY
     Route: 048
  9. LISINOPRIL. [Concomitant]
     Active Substance: LISINOPRIL
     Indication: ARRHYTHMIA
  10. DUOPA [Suspect]
     Active Substance: CARBIDOPA\LEVODOPA
     Indication: PARKINSON^S DISEASE
     Dosage: 5.1 CONTINUOUS RATE
     Route: 050
     Dates: start: 201708, end: 201808
  11. LEXAPRO [Concomitant]
     Active Substance: ESCITALOPRAM OXALATE
     Indication: PRODUCT USED FOR UNKNOWN INDICATION
     Dosage: ONCE DAILY
     Route: 048
  12. CENTRUM SILVER [Concomitant]
     Active Substance: MINERALS\VITAMINS
     Indication: PRODUCT USED FOR UNKNOWN INDICATION
     Route: 048

REACTIONS (13)
  - Energy increased [Not Recovered/Not Resolved]
  - Device damage [Recovered/Resolved]
  - Device leakage [Recovered/Resolved]
  - Device connection issue [Recovered/Resolved]
  - Discomfort [Not Recovered/Not Resolved]
  - Drug effect decreased [Recovering/Resolving]
  - Hallucination [Not Recovered/Not Resolved]
  - Device breakage [Recovered/Resolved]
  - Device dislocation [Recovered/Resolved]
  - Fall [Recovering/Resolving]
  - Muscle tightness [Not Recovered/Not Resolved]
  - Decreased activity [Not Recovered/Not Resolved]
  - Dyspnoea [Not Recovered/Not Resolved]

NARRATIVE: CASE EVENT DATE: 201708
